FAERS Safety Report 14458770 (Version 2)
Quarter: 2018Q1

REPORT INFORMATION
  Report Type: Spontaneous
  Country: US (occurrence: US)
  Receive Date: 20180130
  Receipt Date: 20180321
  Transmission Date: 20180509
  Serious: Yes (Hospitalization)
  Sender: FDA-Public Use
  Company Number: US-SA-2018SA020163

PATIENT
  Age: 48 Year
  Sex: Male
  Weight: 86.63 kg

DRUGS (12)
  1. XYZAL [Concomitant]
     Active Substance: LEVOCETIRIZINE DIHYDROCHLORIDE
     Dosage: STRENGTH: 5 MG
     Route: 048
     Dates: start: 20170920
  2. ATENOLOL. [Concomitant]
     Active Substance: ATENOLOL
     Dosage: STRENGTH: 25 MG
     Route: 048
     Dates: start: 20170920
  3. HYDROCHLOROTHIAZIDE. [Concomitant]
     Active Substance: HYDROCHLOROTHIAZIDE
     Dosage: STRENGTH: 25 MG
     Route: 048
     Dates: start: 20170920
  4. TRAZODONE HYDROCHLORIDE. [Concomitant]
     Active Substance: TRAZODONE HYDROCHLORIDE
     Dosage: STRENGTH: 50 MG
     Route: 048
     Dates: start: 20170920
  5. EUCRISA [Concomitant]
     Active Substance: CRISABOROLE
     Dosage: STRENGTH: 2%, APPLIED A THIN FILM TO AFFECTED AREA TWICE DAILY
     Route: 065
     Dates: start: 20170920
  6. PATADAY [Concomitant]
     Active Substance: OLOPATADINE HYDROCHLORIDE
     Dosage: STRENGTH: 0.2%, OPHTHALMIC SOLUTION, 1 DROP IN EYES ONCE DAILY AS NEEDED
     Route: 047
     Dates: start: 20180117
  7. TRIAMCINOLONE ACETONIDE. [Concomitant]
     Active Substance: TRIAMCINOLONE ACETONIDE
     Dosage: STRENGTH: 0.1%, APPLIED TO AFFECTED AREAS OF SKIN TWICE DAILY AS NEEDED
     Route: 065
     Dates: start: 20170920
  8. PATANOL [Concomitant]
     Active Substance: OLOPATADINE HYDROCHLORIDE
     Dosage: STRENGTH: 0.1%, OPHTHALMIC SOLUTION, INTILL 1 DROP IN EYE TWICE DAILY AS NEEDED
     Route: 047
     Dates: start: 20171206
  9. DUPIXENT [Suspect]
     Active Substance: DUPILUMAB
     Indication: DERMATITIS ATOPIC
     Route: 058
     Dates: start: 20170920, end: 201712
  10. CROMOLYN SODIUM. [Concomitant]
     Active Substance: CROMOLYN SODIUM
     Dosage: STRENGTH: 4%, OPHTHALMIC SOLUTION, 1-2 DROPS IN EYES 4-6 TIMES PER DAY AS NEEDED
     Route: 047
     Dates: start: 20171220
  11. ALREX [Concomitant]
     Active Substance: LOTEPREDNOL ETABONATE
     Dosage: STRENGTH: 0.2%, OPHTHALMIC SUSPENSION, 1 DROP IN BOTH EYES FOUR TIMES A DAY AS NEEDED UPTO 5 DAYS
     Route: 047
     Dates: start: 20171206
  12. ZOLPIDEM TARTRATE. [Concomitant]
     Active Substance: ZOLPIDEM TARTRATE
     Dosage: STRENGTH: 5 MG
     Route: 048
     Dates: start: 20170920

REACTIONS (3)
  - Haematochezia [Unknown]
  - Diarrhoea [Unknown]
  - Colitis [Unknown]
